FAERS Safety Report 24642671 (Version 1)
Quarter: 2024Q4

REPORT INFORMATION
  Report Type: Spontaneous
  Country: US (occurrence: None)
  Receive Date: 20241120
  Receipt Date: 20241120
  Transmission Date: 20250114
  Serious: Yes (Hospitalization)
  Sender: Public
  Company Number: None

PATIENT
  Sex: Female

DRUGS (1)
  1. TERIFLUNOMIDE [Suspect]
     Active Substance: TERIFLUNOMIDE
     Indication: Multiple sclerosis
     Dosage: FREQ: TAKE 1 TABLET BY MOUTH DAILY
     Route: 048
     Dates: start: 202407

REACTIONS (16)
  - Constipation [None]
  - Depression [None]
  - Dizziness [None]
  - Alopecia [None]
  - Fall [None]
  - Musculoskeletal stiffness [None]
  - Sensory disturbance [None]
  - Cognitive disorder [None]
  - Dysuria [None]
  - Sleep disorder [None]
  - Hyperhidrosis [None]
  - Paraesthesia [None]
  - Sexual dysfunction [None]
  - Mobility decreased [None]
  - Functional gastrointestinal disorder [None]
  - Visual impairment [None]
